FAERS Safety Report 11833862 (Version 1)
Quarter: 2015Q4

REPORT INFORMATION
  Report Type: Spontaneous
  Country: US (occurrence: US)
  Receive Date: 20151214
  Receipt Date: 20151214
  Transmission Date: 20160305
  Serious: Yes (Other)
  Sender: FDA-Public Use
  Company Number: US-BAYER-2015-483787

PATIENT
  Age: 35 Year
  Sex: Male
  Weight: 81.63 kg

DRUGS (1)
  1. PAIN STOPPER EXTRA [Suspect]
     Active Substance: ACETAMINOPHEN\ASPIRIN\CAFFEINE\SALICYLAMIDE
     Indication: NERVE COMPRESSION
     Dosage: 2 DF, QD
     Route: 048
     Dates: start: 20151202

REACTIONS (5)
  - Product use issue [None]
  - Abdominal discomfort [None]
  - Haematochezia [None]
  - Anxiety [None]
  - Abdominal pain [None]

NARRATIVE: CASE EVENT DATE: 201512
